FAERS Safety Report 5053367-8 (Version None)
Quarter: 2006Q3

REPORT INFORMATION
  Report Type: 
  Country: None (occurrence: None)
  Receive Date: 20060718
  Receipt Date: 20060328
  Transmission Date: 20061208
  Serious: Yes (Other)
  Sender: FDA-Public Use
  Company Number: PHBS2006JP04884

PATIENT
  Age: 11 Year
  Sex: Male
  Weight: 34 kg

DRUGS (19)
  1. TEGRETOL [Suspect]
     Indication: EPILEPSY
     Dosage: 100 MG, BID
     Route: 048
     Dates: start: 20040330
  2. TEGRETOL [Suspect]
     Dosage: 125 MG, BID
     Route: 048
     Dates: start: 20050208
  3. TEGRETOL [Suspect]
     Dosage: 175 MG, BID
     Route: 048
     Dates: start: 20050510
  4. TEGRETOL [Suspect]
     Dosage: 200 MG, BID
     Route: 048
     Dates: start: 20050906
  5. TEGRETOL [Suspect]
     Dosage: 250 MG, BID
     Route: 048
     Dates: start: 20051011
  6. TEGRETOL [Suspect]
     Dosage: 200 MG, BID
     Route: 048
     Dates: start: 20060328
  7. TEGRETOL [Suspect]
     Dosage: 125 MG, BID
     Route: 048
     Dates: start: 20060411
  8. TEGRETOL [Suspect]
     Dosage: 50 MG, BID
     Route: 048
     Dates: start: 20060425
  9. TEGRETOL [Suspect]
     Dosage: 175 MG, BID
     Route: 048
     Dates: start: 20060508
  10. TEGRETOL [Suspect]
     Dosage: 150 MG, BID
     Route: 048
     Dates: start: 20060523
  11. TEGRETOL [Suspect]
     Dosage: 125 MG, BID
     Route: 048
     Dates: start: 20060620
  12. TEGRETOL [Suspect]
     Dosage: 100 MG, BID
     Route: 048
     Dates: start: 20060704
  13. TEGRETOL [Suspect]
     Dosage: 150 MG, BID
     Route: 048
     Dates: start: 20050405
  14. TEGRETOL [Suspect]
     Dosage: 70 MG, BID
     Route: 048
     Dates: start: 20031224
  15. ZONISAMIDE [Concomitant]
     Indication: EPILEPSY
     Dosage: 120 MG/DAY
     Route: 048
     Dates: start: 20060328
  16. ZONISAMIDE [Concomitant]
     Dosage: 160 MG/DAY
     Route: 048
  17. ZONISAMIDE [Concomitant]
     Dosage: 200 MG/DAY
     Route: 048
  18. ZONISAMIDE [Concomitant]
     Dosage: 280 MG/DAY
     Route: 048
  19. ZONISAMIDE [Concomitant]
     Dosage: 320 MG/DAY
     Route: 048

REACTIONS (2)
  - BLOOD CREATINE PHOSPHOKINASE INCREASED [None]
  - CONVULSION [None]
